FAERS Safety Report 7789457-6 (Version None)
Quarter: 2011Q3

REPORT INFORMATION
  Report Type: 
  Country: None (occurrence: None)
  Receive Date: 20110930
  Receipt Date: 20110923
  Transmission Date: 20111222
  Serious: Yes (Life-Threatening, Hospitalization, Other)
  Sender: FDA-Public Use
  Company Number: US-ACTELION-A-US2011-53838

PATIENT

DRUGS (15)
  1. TRACLEER [Suspect]
     Indication: PULMONARY ARTERIAL HYPERTENSION
     Dosage: 125 MG, BID
     Route: 048
     Dates: start: 20080314
  2. CELEBREX [Concomitant]
  3. FLEXERIL [Concomitant]
  4. TRAZODONE HYDROCHLORIDE [Concomitant]
  5. SINGULAIR [Concomitant]
  6. EVISTA [Concomitant]
  7. PROVENTIL [Concomitant]
  8. SUDAFED 12 HOUR [Concomitant]
  9. MUCINEX [Concomitant]
  10. PROTONIX [Concomitant]
  11. TESSALON [Concomitant]
  12. VITAMIN TAB [Concomitant]
  13. ALLEGRA [Concomitant]
  14. THYROID THERAPY [Concomitant]
  15. DIOVAN [Concomitant]

REACTIONS (2)
  - COLITIS [None]
  - ABDOMINAL PAIN [None]
